FAERS Safety Report 24224009 (Version 1)
Quarter: 2024Q3

REPORT INFORMATION
  Report Type: Spontaneous
  Country: US (occurrence: None)
  Receive Date: 20240817
  Receipt Date: 20240817
  Transmission Date: 20241016
  Serious: Yes (Other)
  Sender: Public
  Company Number: None

PATIENT
  Age: 67 Year
  Sex: Female
  Weight: 135 kg

DRUGS (1)
  1. ZORYVE [Suspect]
     Active Substance: ROFLUMILAST
     Indication: Seborrhoeic dermatitis
     Dosage: 1 SMALL DAILY TOPICAL
     Route: 061

REACTIONS (4)
  - Skin burning sensation [None]
  - Urticaria [None]
  - Skin irritation [None]
  - Scar [None]

NARRATIVE: CASE EVENT DATE: 20240817
